FAERS Safety Report 9483288 (Version 2)
Quarter: 2013Q3

REPORT INFORMATION
  Report Type: Spontaneous
  Country: CA (occurrence: CA)
  Receive Date: 20130828
  Receipt Date: 20130828
  Transmission Date: 20140515
  Serious: Yes (Hospitalization)
  Sender: FDA-Public Use
  Company Number: CA-AMGEN-KDL248323

PATIENT
  Age: 72 Year
  Sex: Male
  Weight: 95 kg

DRUGS (1)
  1. ENBREL [Suspect]
     Indication: PSORIATIC ARTHROPATHY
     Dosage: 25 MG, 2 TIMES/WK
     Route: 058
     Dates: start: 20060906

REACTIONS (5)
  - Cystitis [Unknown]
  - Kidney infection [Unknown]
  - Hyperglycaemia [Unknown]
  - Hypotension [Unknown]
  - Psoriatic arthropathy [Not Recovered/Not Resolved]
